FAERS Safety Report 15221923 (Version 1)
Quarter: 2018Q3

REPORT INFORMATION
  Report Type: Spontaneous
  Country: US (occurrence: US)
  Receive Date: 20180705
  Receipt Date: 20180705
  Transmission Date: 20181010
  Serious: No
  Sender: FDA-Public Use
  Company Number: None

PATIENT
  Age: 56 Year
  Sex: Female
  Weight: 78.75 kg

DRUGS (3)
  1. MONTELUKAST 10 MG [Suspect]
     Active Substance: MONTELUKAST SODIUM
     Indication: ALLERGIC COUGH
     Dosage: ?          QUANTITY:1 TABLET(S);OTHER FREQUENCY:EVENING;?
     Route: 048
     Dates: start: 20180630, end: 20180703
  2. MONTELUKAST 10 MG [Suspect]
     Active Substance: MONTELUKAST SODIUM
     Indication: CHEST DISCOMFORT
     Dosage: ?          QUANTITY:1 TABLET(S);OTHER FREQUENCY:EVENING;?
     Route: 048
     Dates: start: 20180630, end: 20180703
  3. VITAMIN D [Concomitant]
     Active Substance: CHOLECALCIFEROL

REACTIONS (2)
  - Peripheral swelling [None]
  - Pain in extremity [None]

NARRATIVE: CASE EVENT DATE: 20180704
